FAERS Safety Report 16061004 (Version 1)
Quarter: 2019Q1

REPORT INFORMATION
  Report Type: Spontaneous
  Country: US (occurrence: US)
  Receive Date: 20190312
  Receipt Date: 20190312
  Transmission Date: 20190418
  Serious: Yes (Other)
  Sender: FDA-Public Use
  Company Number: US-ROCHE-2107477

PATIENT

DRUGS (4)
  1. FOLINIC ACID [Concomitant]
     Active Substance: LEUCOVORIN
     Indication: COLON CANCER STAGE IV
     Route: 065
     Dates: start: 20171010
  2. AVASTIN [Suspect]
     Active Substance: BEVACIZUMAB
     Indication: COLON CANCER STAGE IV
     Route: 065
     Dates: start: 20171010
  3. FLUOROURACIL. [Concomitant]
     Active Substance: FLUOROURACIL
     Indication: COLON CANCER STAGE IV
     Route: 065
     Dates: start: 20171010
  4. OXALIPLATIN. [Concomitant]
     Active Substance: OXALIPLATIN
     Indication: COLON CANCER STAGE IV
     Route: 065
     Dates: start: 20171010

REACTIONS (1)
  - Gastrointestinal perforation [Unknown]

NARRATIVE: CASE EVENT DATE: 201804
